FAERS Safety Report 16975489 (Version 1)
Quarter: 2019Q4

REPORT INFORMATION
  Report Type: Spontaneous
  Country: US (occurrence: US)
  Receive Date: 20191029
  Receipt Date: 20191029
  Transmission Date: 20200122
  Serious: No
  Sender: FDA-Public Use
  Company Number: None

PATIENT
  Age: 63 Year
  Sex: Female
  Weight: 61.65 kg

DRUGS (8)
  1. ESTRADIOL. [Concomitant]
     Active Substance: ESTRADIOL
  2. LAMOTRIGINE. [Concomitant]
     Active Substance: LAMOTRIGINE
  3. SALMON OIL [Concomitant]
     Active Substance: FISH OIL
  4. XALATAN [Concomitant]
     Active Substance: LATANOPROST
  5. VITAMIN D3 [Concomitant]
     Active Substance: CHOLECALCIFEROL
  6. LORAZEPAM 1 MG [Suspect]
     Active Substance: LORAZEPAM
     Indication: ANXIETY
     Dosage: ?          QUANTITY:90 TABLET(S);?
     Route: 048
     Dates: start: 20191011, end: 20191026
  7. MAGNESIUM GLYCINATE [Concomitant]
     Active Substance: MAGNESIUM GLYCINATE
  8. COQI0 [Concomitant]

REACTIONS (9)
  - Balance disorder [None]
  - Abdominal discomfort [None]
  - Dizziness [None]
  - Sedation [None]
  - Sleep disorder [None]
  - Dysgeusia [None]
  - Product substitution issue [None]
  - Gastritis [None]
  - Aphasia [None]

NARRATIVE: CASE EVENT DATE: 20191015
